FAERS Safety Report 5168450-6 (Version None)
Quarter: 2006Q4

REPORT INFORMATION
  Report Type: 
  Country: None (occurrence: None)
  Receive Date: 20061208
  Receipt Date: 20061128
  Transmission Date: 20070319
  Serious: Yes (Hospitalization)
  Sender: FDA-Public Use
  Company Number: FR-ROCHE-472808

PATIENT
  Age: 66 Year
  Sex: Male
  Weight: 79 kg

DRUGS (13)
  1. LOXEN [Suspect]
     Indication: HYPERTENSION
     Route: 048
     Dates: start: 20051228, end: 20060504
  2. ISOCARD [Suspect]
     Indication: HYPERTENSION
     Route: 060
     Dates: start: 20051228, end: 20060502
  3. SECTRAL [Suspect]
     Indication: ISCHAEMIC CARDIOMYOPATHY
     Route: 065
     Dates: start: 20051015
  4. PERINDOPRIL ERBUMINE [Suspect]
     Indication: ISCHAEMIC CARDIOMYOPATHY
     Route: 048
     Dates: start: 20051015, end: 20060502
  5. CORDARONE [Suspect]
     Indication: ISCHAEMIC CARDIOMYOPATHY
     Route: 065
     Dates: start: 20051015
  6. PLAVIX [Suspect]
     Indication: ISCHAEMIC CARDIOMYOPATHY
     Route: 048
     Dates: start: 20051015
  7. XANAX [Suspect]
     Indication: DRUG USE FOR UNKNOWN INDICATION
     Route: 048
     Dates: start: 20040615, end: 20060502
  8. XANAX [Suspect]
     Route: 048
  9. NOCTRAN 10 [Suspect]
     Indication: DRUG USE FOR UNKNOWN INDICATION
     Route: 048
     Dates: start: 20060103, end: 20060502
  10. PROZAC [Suspect]
     Indication: DRUG USE FOR UNKNOWN INDICATION
     Route: 048
     Dates: start: 20051215, end: 20060502
  11. PROZAC [Suspect]
     Route: 048
  12. DEPAKOTE [Concomitant]
  13. MEDIATOR [Concomitant]
     Indication: DIABETES MELLITUS NON-INSULIN-DEPENDENT

REACTIONS (8)
  - BLOOD CREATININE INCREASED [None]
  - CYTOLYTIC HEPATITIS [None]
  - DIARRHOEA [None]
  - DISSEMINATED INTRAVASCULAR COAGULATION [None]
  - FALL [None]
  - HYPERURICAEMIA [None]
  - MENTAL IMPAIRMENT [None]
  - RHABDOMYOLYSIS [None]
